FAERS Safety Report 8028826-6 (Version None)
Quarter: 2012Q1

REPORT INFORMATION
  Report Type: 
  Country: None (occurrence: None)
  Receive Date: 20120106
  Receipt Date: 20120103
  Transmission Date: 20120608
  Serious: Yes (Other)
  Sender: FDA-Public Use
  Company Number: US-TEVA-315797USA

PATIENT
  Sex: Male
  Weight: 113.5 kg

DRUGS (4)
  1. GUAIFENESIN [Concomitant]
  2. PROAIR HFA [Suspect]
     Indication: ASTHMA
     Dosage: 540 MICROGRAM; 2 PUFFS
     Route: 055
     Dates: start: 20111226, end: 20120101
  3. LORATADINE [Concomitant]
  4. CO-TYLENOL [Concomitant]

REACTIONS (1)
  - CONVULSION [None]
